FAERS Safety Report 9054950 (Version 1)
Quarter: 2013Q1

REPORT INFORMATION
  Report Type: Spontaneous
  Country: FR (occurrence: FR)
  Receive Date: 20130208
  Receipt Date: 20130208
  Transmission Date: 20140127
  Serious: Yes (Disabling)
  Sender: FDA-Public Use
  Company Number: FR-ROCHE-1188932

PATIENT
  Age: 44 Year
  Sex: Male

DRUGS (4)
  1. PEGASYS [Suspect]
     Indication: PRODUCT USED FOR UNKNOWN INDICATION
     Route: 058
     Dates: start: 20060801, end: 200702
  2. COPEGUS [Concomitant]
     Route: 048
     Dates: start: 20060801
  3. COPEGUS [Concomitant]
     Route: 048
     Dates: end: 200702
  4. SUBUTEX [Concomitant]
     Route: 048

REACTIONS (2)
  - Maculopathy [Not Recovered/Not Resolved]
  - Decreased appetite [Recovered/Resolved]
